FAERS Safety Report 6155621-5 (Version None)
Quarter: 2009Q2

REPORT INFORMATION
  Report Type: 
  Country: None (occurrence: None)
  Receive Date: 20090413
  Receipt Date: 20090413
  Transmission Date: 20091009
  Serious: No
  Sender: FDA-Public Use
  Company Number: None

PATIENT
  Age: 53 Year
  Sex: Male
  Weight: 72.5755 kg

DRUGS (3)
  1. SIMVASTATIN [Suspect]
     Indication: BLOOD CHOLESTEROL
     Dosage: 40 MG -HALF TABLET- DAILY AT BEDTIME PO
     Route: 048
  2. ETODOLAC [Concomitant]
  3. CYCLOBENZAPRINE [Concomitant]

REACTIONS (5)
  - CONSTIPATION [None]
  - ERECTILE DYSFUNCTION [None]
  - MUSCULAR WEAKNESS [None]
  - MYALGIA [None]
  - VISION BLURRED [None]
